FAERS Safety Report 9289494 (Version 1)
Quarter: 2013Q2

REPORT INFORMATION
  Report Type: Spontaneous
  Country: US (occurrence: GB)
  Receive Date: 20130514
  Receipt Date: 20130514
  Transmission Date: 20140414
  Serious: Yes (Other)
  Sender: FDA-Public Use
  Company Number: US-009507513-1305GBR006671

PATIENT
  Age: 46 Year
  Sex: Female
  Weight: 63.5 kg

DRUGS (1)
  1. MAXALT 10 MG TABLETS [Suspect]
     Indication: MIGRAINE
     Dosage: 1 DF, QD
     Route: 048
     Dates: start: 20130429, end: 20130429

REACTIONS (10)
  - Visual acuity reduced [Unknown]
  - Swelling face [Recovering/Resolving]
  - Eye swelling [Recovering/Resolving]
  - Eyelid oedema [Recovering/Resolving]
  - Lip swelling [Recovering/Resolving]
  - Hypersensitivity [Unknown]
  - Discomfort [Unknown]
  - Pain [Unknown]
  - Impaired work ability [None]
  - Impaired driving ability [None]
